FAERS Safety Report 8846242 (Version 1)
Quarter: 2012Q4

REPORT INFORMATION
  Report Type: 
  Country: DK (occurrence: DK)
  Receive Date: 20121017
  Receipt Date: 20121017
  Transmission Date: 20130627
  Serious: Yes (Other)
  Sender: FDA-Public Use
  Company Number: PHHY2012DK089776

PATIENT
  Age: 60 Year
  Sex: Female

DRUGS (9)
  1. CORODIL [Suspect]
     Indication: HYPERTENSION
     Dosage: STYRKE: 5 mg
     Route: 048
     Dates: start: 19970424, end: 20120927
  2. ATORVASTATIN [Concomitant]
     Indication: HYPERLIPIDAEMIA
  3. CENTYL MED KALIUMKLORID [Concomitant]
     Indication: HYPERTENSION
  4. CYMBALTA [Concomitant]
     Indication: DEPRESSION
  5. EZETROL [Concomitant]
     Indication: HYPERLIPIDAEMIA
  6. KALEORID [Concomitant]
  7. LEVEMIR [Concomitant]
     Indication: DIABETES MELLITUS
  8. NOVORAPID [Concomitant]
     Indication: DIABETES MELLITUS
  9. SPIRIX [Concomitant]

REACTIONS (1)
  - Cutaneous lupus erythematosus [Not Recovered/Not Resolved]
